FAERS Safety Report 5283644-7 (Version None)
Quarter: 2007Q1

REPORT INFORMATION
  Report Type: 
  Country: None (occurrence: None)
  Receive Date: 20061226
  Receipt Date: 20061027
  Transmission Date: 20070707
  Serious: No
  Sender: FDA-Public Use
  Company Number: PHEH2006US13506

PATIENT
  Sex: Female

DRUGS (2)
  1. ENABLEX [Suspect]
     Dosage: ORAL
     Route: 048
     Dates: start: 20061027
  2. FOSAMAX [Concomitant]

REACTIONS (1)
  - CONSTIPATION [None]
